FAERS Safety Report 17565789 (Version 1)
Quarter: 2020Q1

REPORT INFORMATION
  Report Type: Spontaneous
  Country: SE (occurrence: SE)
  Receive Date: 20200320
  Receipt Date: 20200320
  Transmission Date: 20200409
  Serious: Yes (Other)
  Sender: FDA-Public Use
  Company Number: SE-009507513-2003SWE006772

PATIENT
  Sex: Female
  Weight: 64 kg

DRUGS (1)
  1. NUVARING [Suspect]
     Active Substance: ETHINYL ESTRADIOL\ETONOGESTREL
     Indication: CONTRACEPTION
     Dosage: 0,120 MG/0,015 MG PER 24 HOURS VAGINAL DELIVERY SYSTEM
     Route: 067
     Dates: start: 2018, end: 201904

REACTIONS (3)
  - Libido decreased [Recovered/Resolved]
  - Genital infection fungal [Recovered/Resolved]
  - Depressed mood [Recovered/Resolved]
